FAERS Safety Report 4451489-3 (Version None)
Quarter: 2004Q3

REPORT INFORMATION
  Report Type: 
  Country: None (occurrence: None)
  Receive Date: 20040915
  Receipt Date: 20040802
  Transmission Date: 20050211
  Serious: No
  Sender: FDA-Public Use
  Company Number: J200403346

PATIENT
  Age: 66 Year
  Sex: Male

DRUGS (1)
  1. (MYSLEE) ZOLPIDEM TABLET 10MG [Suspect]
     Dosage: 10 MG, PO
     Route: 048
     Dates: start: 20040709, end: 20040710

REACTIONS (1)
  - DELIRIUM [None]
